FAERS Safety Report 23419433 (Version 1)
Quarter: 2024Q1

REPORT INFORMATION
  Report Type: Other
  Country: CA (occurrence: CA)
  Receive Date: 20240118
  Receipt Date: 20240118
  Transmission Date: 20240409
  Serious: Yes (Other)
  Sender: FDA-Public Use
  Company Number: CA-BIOCON-BBL2023001327

PATIENT
  Age: 21 Year
  Sex: Male

DRUGS (1)
  1. HULIO [Suspect]
     Active Substance: ADALIMUMAB-FKJP
     Indication: Crohn^s disease
     Dosage: 40.0 MILLIGRAM 1 EVERY 1 WEEKS
     Route: 058

REACTIONS (4)
  - Anal abscess [Unknown]
  - Alopecia [Unknown]
  - Psoriasis [Unknown]
  - Off label use [Unknown]
